FAERS Safety Report 5465851-3 (Version None)
Quarter: 2007Q3

REPORT INFORMATION
  Report Type: 
  Country: None (occurrence: None)
  Receive Date: 20070924
  Receipt Date: 20070920
  Transmission Date: 20080115
  Serious: Yes (Death)
  Sender: FDA-Public Use
  Company Number: PHBS2007JP15636

PATIENT
  Age: 69 Year
  Sex: Male
  Weight: 97 kg

DRUGS (3)
  1. ZOMETA [Suspect]
     Indication: BONE PAIN
     Dosage: 4 MG, UNK
     Route: 042
     Dates: start: 20070402, end: 20070402
  2. DECADRON [Concomitant]
     Indication: PROPHYLAXIS
     Dosage: 8 MG, UNK
     Route: 042
     Dates: start: 20070406, end: 20070406
  3. SEROTONE [Concomitant]
     Indication: PROPHYLAXIS
     Dosage: 10 MG, UNK
     Route: 042
     Dates: start: 20070406, end: 20070406

REACTIONS (9)
  - ATRIAL FIBRILLATION [None]
  - BLOOD CREATININE DECREASED [None]
  - BLOOD PRESSURE DECREASED [None]
  - CARDIAC FAILURE CONGESTIVE [None]
  - CARDIOVERSION [None]
  - DISSEMINATED INTRAVASCULAR COAGULATION [None]
  - HEART RATE INCREASED [None]
  - OLIGURIA [None]
  - RENAL FAILURE ACUTE [None]
